FAERS Safety Report 6517072-0 (Version None)
Quarter: 2009Q4

REPORT INFORMATION
  Report Type: 
  Country: None (occurrence: None)
  Receive Date: 20091223
  Receipt Date: 20091201
  Transmission Date: 20100525
  Serious: Yes (Hospitalization)
  Sender: FDA-Public Use
  Company Number: A0339806A

PATIENT
  Age: 67 Year
  Sex: Male
  Weight: 106.8 kg

DRUGS (5)
  1. AVANDIA [Suspect]
     Dosage: 8MG PER DAY
     Route: 048
     Dates: start: 19990901, end: 20070601
  2. HUMULIN 70/30 [Concomitant]
     Dosage: 50UNIT PER DAY
     Route: 058
  3. LOTENSIN [Concomitant]
     Dosage: 40MG TWICE PER DAY
  4. UROCIT-K [Concomitant]
     Dosage: 1080MG TWICE PER DAY
  5. BAYCOL [Concomitant]
     Dosage: .8MG PER DAY
     Route: 048

REACTIONS (7)
  - AMNESIA [None]
  - CEREBROVASCULAR ACCIDENT [None]
  - CONFUSIONAL STATE [None]
  - HEMIPARESIS [None]
  - INFLUENZA LIKE ILLNESS [None]
  - RHINORRHOEA [None]
  - SNEEZING [None]
